FAERS Safety Report 14920141 (Version 1)
Quarter: 2018Q2

REPORT INFORMATION
  Report Type: Spontaneous
  Country: FR (occurrence: FR)
  Receive Date: 20180521
  Receipt Date: 20180521
  Transmission Date: 20180711
  Serious: Yes (Hospitalization)
  Sender: FDA-Public Use
  Company Number: FR-PFIZER INC-2018203689

PATIENT
  Age: 65 Year
  Sex: Male

DRUGS (1)
  1. VORICONAZOLE. [Suspect]
     Active Substance: VORICONAZOLE
     Indication: INFECTION
     Dosage: 500 MG, UNK

REACTIONS (2)
  - Neuropathy peripheral [Not Recovered/Not Resolved]
  - Solar dermatitis [Not Recovered/Not Resolved]

NARRATIVE: CASE EVENT DATE: 201803
